FAERS Safety Report 14313708 (Version 2)
Quarter: 2018Q1

REPORT INFORMATION
  Report Type: Spontaneous
  Country: AR (occurrence: AR)
  Receive Date: 20171221
  Receipt Date: 20180111
  Transmission Date: 20180509
  Serious: Yes (Other)
  Sender: FDA-Public Use
  Company Number: AR-PFIZER INC-2017540516

PATIENT
  Age: 57 Year
  Sex: Male

DRUGS (1)
  1. SUTENT [Suspect]
     Active Substance: SUNITINIB MALATE
     Indication: METASTATIC RENAL CELL CARCINOMA
     Dosage: UNK
     Dates: start: 20160415, end: 201711

REACTIONS (4)
  - Azotaemia [Recovered/Resolved]
  - Fatigue [Unknown]
  - Renal disorder [Recovered/Resolved]
  - Blister [Unknown]

NARRATIVE: CASE EVENT DATE: 201711
